FAERS Safety Report 8173502-2 (Version None)
Quarter: 2012Q1

REPORT INFORMATION
  Report Type: 
  Country: None (occurrence: None)
  Receive Date: 20120223
  Receipt Date: 20120214
  Transmission Date: 20120608
  Serious: Yes (Other)
  Sender: FDA-Public Use
  Company Number: 2012AP000396

PATIENT
  Age: 83 Year
  Sex: Male

DRUGS (8)
  1. TAMSULOSIN HCL [Concomitant]
  2. NIFEDIPINE [Concomitant]
  3. SIMVASTATIN [Concomitant]
  4. AMIODARONE HYDROCHLORIDE [Suspect]
     Indication: ATRIAL FIBRILLATION
     Dosage: 200 MG;QD
     Dates: start: 20030301
  5. ATENOLOL [Concomitant]
  6. REPAGLINIDE [Concomitant]
  7. ISONIAZID [Suspect]
     Indication: TUBERCULOSIS
  8. RIFAMPIN [Suspect]
     Indication: TUBERCULOSIS

REACTIONS (5)
  - DRUG INTERACTION [None]
  - PALPITATIONS [None]
  - CORNEAL DEPOSITS [None]
  - HALO VISION [None]
  - DRUG LEVEL BELOW THERAPEUTIC [None]
